FAERS Safety Report 23922898 (Version 4)
Quarter: 2024Q4

REPORT INFORMATION
  Report Type: Spontaneous
  Country: US (occurrence: US)
  Receive Date: 20240531
  Receipt Date: 20241204
  Transmission Date: 20250115
  Serious: Yes (Hospitalization)
  Sender: CIPLA
  Company Number: US-CIPLA LTD.-2024US02587

PATIENT

DRUGS (13)
  1. SAJAZIR [Suspect]
     Active Substance: ICATIBANT ACETATE
     Indication: Complement factor abnormal
     Dosage: 30 MILLIGRAMS, PRN (1^S - 30 MG PFS 3 ML - 1PK BRIDGE)
     Route: 058
     Dates: start: 20231229
  2. SAJAZIR [Suspect]
     Active Substance: ICATIBANT ACETATE
     Dosage: 30 MILLIGRAMS, PRN (1^S - 30 MG PFS 3 ML - 1PK BRIDGE)
     Route: 058
     Dates: start: 20231229
  3. SAJAZIR [Suspect]
     Active Substance: ICATIBANT ACETATE
     Dosage: 30 MILLIGRAMS, PRN (1^S - 30 MG PFS 3 ML - 1PK BRIDGE)
     Route: 058
     Dates: start: 20231230
  4. SAJAZIR [Suspect]
     Active Substance: ICATIBANT ACETATE
     Dosage: 30 MILLIGRAMS, PRN (1^S - 30 MG PFS 3 ML - 1PK BRIDGE)
     Route: 058
     Dates: start: 2024
  5. GABAPENTIN [Concomitant]
     Active Substance: GABAPENTIN
     Indication: Product used for unknown indication
     Dosage: UNK
     Route: 065
  6. CARVEDILOL [Concomitant]
     Active Substance: CARVEDILOL
     Indication: Product used for unknown indication
     Dosage: UNK
     Route: 065
  7. AMLODIPINE BESYLATE [Concomitant]
     Active Substance: AMLODIPINE BESYLATE
     Indication: Product used for unknown indication
     Dosage: UNK
     Route: 065
  8. LEVOTHYROXINE [Concomitant]
     Active Substance: LEVOTHYROXINE
     Indication: Product used for unknown indication
     Dosage: UNK
     Route: 065
  9. SYNTHROID [Concomitant]
     Active Substance: LEVOTHYROXINE SODIUM
     Indication: Product used for unknown indication
     Dosage: UNK
     Route: 065
  10. AMITRIPTYLINE [Concomitant]
     Active Substance: AMITRIPTYLINE
     Indication: Product used for unknown indication
     Dosage: UNK
     Route: 065
  11. METFORMIN [Concomitant]
     Active Substance: METFORMIN HYDROCHLORIDE
     Indication: Product used for unknown indication
     Dosage: UNK
     Route: 065
  12. AMLODIPINE\OLMESARTAN [Concomitant]
     Active Substance: AMLODIPINE\OLMESARTAN
     Indication: Product used for unknown indication
     Dosage: UNK
     Route: 065
  13. PROCHLORPERAZINE MALEATE [Concomitant]
     Active Substance: PROCHLORPERAZINE MALEATE
     Indication: Product used for unknown indication
     Dosage: UNK
     Route: 065

REACTIONS (3)
  - Hereditary angioedema [Not Recovered/Not Resolved]
  - Product availability issue [Unknown]
  - Weight decreased [Unknown]

NARRATIVE: CASE EVENT DATE: 20240101
